FAERS Safety Report 5964627-8 (Version None)
Quarter: 2008Q4

REPORT INFORMATION
  Report Type: 
  Country: None (occurrence: None)
  Receive Date: 20081120
  Receipt Date: 20081106
  Transmission Date: 20090506
  Serious: Yes (Death, Life-Threatening, Hospitalization, Disabling, Other)
  Sender: FDA-Public Use
  Company Number: 2008000170

PATIENT
  Age: 95 Year
  Sex: Female
  Weight: 60 kg

DRUGS (4)
  1. MACUGEN [Suspect]
     Indication: MACULAR DEGENERATION
     Dosage: (0.3 MG, Q6W), INTRA-VITREAL
     Dates: start: 20070727, end: 20080109
  2. ACETYLSALICYLATE LYSINE (ACETYLSALICYLATE LYSINE) [Concomitant]
  3. SIMVASTATIN [Concomitant]
  4. GALENIC/BENAZEPRIL/HYDROCHLOROTHIAZIDE [Concomitant]

REACTIONS (2)
  - ACTIVITIES OF DAILY LIVING IMPAIRED [None]
  - CEREBROVASCULAR ACCIDENT [None]
